FAERS Safety Report 9859837 (Version 4)
Quarter: 2014Q1

REPORT INFORMATION
  Report Type: Report from Study
  Country: US (occurrence: US)
  Receive Date: 20140131
  Receipt Date: 20140305
  Transmission Date: 20141002
  Serious: Yes (Hospitalization)
  Sender: FDA-Public Use
  Company Number: US-ACTELION-A-NJ2014-94422

PATIENT
  Age: 72 Year
  Sex: Male

DRUGS (2)
  1. VENTAVIS [Suspect]
     Indication: PULMONARY ARTERIAL HYPERTENSION
     Dosage: 2.5 MCG, UNK
     Route: 055
     Dates: start: 20140114
  2. ADCIRCA [Concomitant]

REACTIONS (2)
  - Kidney infection [Recovering/Resolving]
  - Renal disorder [Recovering/Resolving]
